FAERS Safety Report 5629002-4 (Version None)
Quarter: 2008Q1

REPORT INFORMATION
  Report Type: 
  Country: None (occurrence: None)
  Receive Date: 20080214
  Receipt Date: 20080204
  Transmission Date: 20080703
  Serious: Yes (Other)
  Sender: FDA-Public Use
  Company Number: 2008S1000037

PATIENT
  Age: 37 Year
  Sex: Female
  Weight: 57.1532 kg

DRUGS (3)
  1. EVOCLIN [Suspect]
     Indication: ACNE
     Dosage: 1 PCT; QD; TDP
     Dates: start: 20080131, end: 20080202
  2. DIFFERIN [Concomitant]
  3. BENZOYL PEROXIDE [Concomitant]

REACTIONS (1)
  - DRUG HYPERSENSITIVITY [None]
